FAERS Safety Report 25223306 (Version 1)
Quarter: 2025Q2

REPORT INFORMATION
  Report Type: Spontaneous
  Country: US (occurrence: US)
  Receive Date: 20250422
  Receipt Date: 20250422
  Transmission Date: 20250716
  Serious: Yes (Death, Life-Threatening, Hospitalization)
  Sender: DR REDDYS
  Company Number: None

PATIENT
  Age: 48 Year
  Sex: Female

DRUGS (7)
  1. HEPARIN [Suspect]
     Active Substance: HEPARIN SODIUM
     Indication: Splenic infarction
  2. TRIAMCINOLONE [Concomitant]
     Active Substance: TRIAMCINOLONE
     Indication: Acute cutaneous lupus erythematosus
  3. TRIAMCINOLONE [Concomitant]
     Active Substance: TRIAMCINOLONE
     Indication: Toxic epidermal necrolysis
  4. TRIAMCINOLONE [Concomitant]
     Active Substance: TRIAMCINOLONE
     Indication: Histiocytic necrotising lymphadenitis
  5. PREDNISONE [Concomitant]
     Active Substance: PREDNISONE
     Indication: Acute cutaneous lupus erythematosus
     Route: 048
  6. PREDNISONE [Concomitant]
     Active Substance: PREDNISONE
     Indication: Toxic epidermal necrolysis
  7. PREDNISONE [Concomitant]
     Active Substance: PREDNISONE
     Indication: Histiocytic necrotising lymphadenitis

REACTIONS (1)
  - Retroperitoneal haemorrhage [Fatal]
